FAERS Safety Report 4316361-8 (Version None)
Quarter: 2004Q1

REPORT INFORMATION
  Report Type: 
  Country: None (occurrence: None)
  Receive Date: 20040311
  Receipt Date: 20040225
  Transmission Date: 20041129
  Serious: Yes (Death, Hospitalization)
  Sender: FDA-Public Use
  Company Number: 2003-BP-04236NB

PATIENT
  Age: 85 Year
  Sex: Female

DRUGS (4)
  1. MOBIC [Suspect]
     Indication: BACK PAIN
     Dosage: 10 MG (10 MG) PO
     Route: 048
     Dates: start: 20030522, end: 20030604
  2. PERSANTIN [Concomitant]
  3. CAPTORIL (CAPTOPRIL) [Concomitant]
  4. MUCOSTA (REBAMIPIDE) [Concomitant]

REACTIONS (3)
  - FALL [None]
  - FEMORAL NECK FRACTURE [None]
  - STOMACH DISCOMFORT [None]
